FAERS Safety Report 13346726 (Version 1)
Quarter: 2017Q1

REPORT INFORMATION
  Report Type: Spontaneous
  Country: PL (occurrence: PL)
  Receive Date: 20170317
  Receipt Date: 20170317
  Transmission Date: 20170428
  Serious: Yes (Other)
  Sender: FDA-Public Use
  Company Number: PL-SA-2017SA040745

PATIENT
  Age: 84 Year
  Sex: Male

DRUGS (8)
  1. PANZOL [Suspect]
     Active Substance: PANTOPRAZOLE SODIUM
     Dosage: IN THE MORNING
     Route: 065
     Dates: start: 20140605, end: 20161015
  2. CLEXANE [Suspect]
     Active Substance: ENOXAPARIN SODIUM
     Route: 058
     Dates: start: 20140605, end: 20161015
  3. AREPLEX [Suspect]
     Active Substance: CLOPIDOGREL BISULFATE
     Route: 065
     Dates: start: 20170101
  4. ACARD [Suspect]
     Active Substance: ASPIRIN
     Dosage: IN THE MORNING
     Route: 065
     Dates: start: 20140605, end: 20161015
  5. AREPLEX [Suspect]
     Active Substance: CLOPIDOGREL BISULFATE
     Dosage: IN THE MORNING
     Route: 065
     Dates: start: 20140605, end: 20161015
  6. CONCOR COR [Suspect]
     Active Substance: BISOPROLOL FUMARATE
     Dosage: IN THE MORNING
     Route: 065
     Dates: start: 20140605, end: 20161015
  7. AMLOZEK [Suspect]
     Active Substance: AMLODIPINE BESYLATE
     Dosage: IN THE EVENING
     Route: 065
     Dates: start: 20140605, end: 20161015
  8. ZAHRON [Suspect]
     Active Substance: ROSUVASTATIN CALCIUM
     Dosage: IN THE EVENING
     Route: 065
     Dates: start: 20140605, end: 20161015

REACTIONS (9)
  - Pruritus [None]
  - Balance disorder [Unknown]
  - Rash papular [None]
  - Dyspnoea [Unknown]
  - Gait disturbance [Unknown]
  - Pruritus [Not Recovered/Not Resolved]
  - Myalgia [Unknown]
  - Hypersensitivity [Unknown]
  - Ecchymosis [Recovered/Resolved]
